FAERS Safety Report 11947842 (Version 2)
Quarter: 2016Q2

REPORT INFORMATION
  Report Type: Report from Study
  Country: CA (occurrence: CA)
  Receive Date: 20160125
  Receipt Date: 20160413
  Transmission Date: 20160815
  Serious: Yes (Hospitalization)
  Sender: FDA-Public Use
  Company Number: CA-JNJFOC-20160109354

PATIENT
  Age: 19 Year
  Sex: Female
  Weight: 63.5 kg

DRUGS (3)
  1. SOLU-MEDROL [Concomitant]
     Active Substance: METHYLPREDNISOLONE SODIUM SUCCINATE
     Indication: COLITIS ULCERATIVE
     Route: 042
     Dates: start: 20151230, end: 20160220
  2. REMICADE [Suspect]
     Active Substance: INFLIXIMAB
     Indication: COLITIS ULCERATIVE
     Route: 042
     Dates: start: 20160102, end: 20160108
  3. REMICADE [Suspect]
     Active Substance: INFLIXIMAB
     Indication: COLITIS ULCERATIVE
     Dosage: IDUCTION DOSE
     Route: 042
     Dates: start: 201512, end: 201512

REACTIONS (5)
  - C-reactive protein abnormal [Unknown]
  - Ileostomy [Unknown]
  - Colectomy [Unknown]
  - Hospitalisation [Not Recovered/Not Resolved]
  - Drug ineffective [Unknown]

NARRATIVE: CASE EVENT DATE: 201601
